FAERS Safety Report 11668130 (Version 1)
Quarter: 2015Q4

REPORT INFORMATION
  Report Type: Spontaneous
  Country: US (occurrence: US)
  Receive Date: 20151027
  Receipt Date: 20151027
  Transmission Date: 20160304
  Serious: No
  Sender: FDA-Public Use
  Company Number: US-ELI_LILLY_AND_COMPANY-US201003003557

PATIENT
  Age: 70 Year
  Sex: Female

DRUGS (2)
  1. DITROPAN /00538901/ [Concomitant]
  2. FORTEO [Suspect]
     Active Substance: TERIPARATIDE
     Dosage: UNK, UNKNOWN

REACTIONS (1)
  - White blood cell count decreased [Unknown]
